FAERS Safety Report 7534958-9 (Version None)
Quarter: 2011Q2

REPORT INFORMATION
  Report Type: 
  Country: None (occurrence: None)
  Receive Date: 20110609
  Receipt Date: 20090209
  Transmission Date: 20111010
  Serious: Yes (Death)
  Sender: FDA-Public Use
  Company Number: PHNR2007AU02200

PATIENT
  Sex: Female
  Weight: 134 kg

DRUGS (5)
  1. ATACAND HCT [Concomitant]
     Dosage: 1TAB/ PER DAY IN THE MORNING
  2. CLOZAPINE [Suspect]
     Indication: SCHIZOPHRENIA
     Dosage: 350 MG DAILY
     Route: 048
     Dates: start: 19980811
  3. SERTRALINE HYDROCHLORIDE [Concomitant]
     Dosage: 200 MG/DAY
  4. LANSOPRAZOLE [Concomitant]
     Dosage: 30 MG, UNK
  5. MULTI-VITAMINS [Concomitant]
     Dosage: ONCE DAILY

REACTIONS (2)
  - FALL [None]
  - PULMONARY EMBOLISM [None]
